FAERS Safety Report 6228542-7 (Version None)
Quarter: 2009Q2

REPORT INFORMATION
  Report Type: 
  Country: None (occurrence: None)
  Receive Date: 20090612
  Receipt Date: 20090604
  Transmission Date: 20091009
  Serious: Yes (Other)
  Sender: FDA-Public Use
  Company Number: PHHY2009KR22143

PATIENT
  Sex: Male

DRUGS (1)
  1. LAMISIL [Suspect]
     Indication: TINEA PEDIS
     Dosage: 125 MG, 2 TABLETS DAILY
     Route: 048
     Dates: start: 20010410, end: 20010605

REACTIONS (5)
  - BLOOD CREATININE INCREASED [None]
  - FATIGUE [None]
  - LIVER DISORDER [None]
  - RENAL FAILURE CHRONIC [None]
  - RENAL TRANSPLANT [None]
